FAERS Safety Report 5902261-6 (Version None)
Quarter: 2008Q3

REPORT INFORMATION
  Report Type: 
  Country: None (occurrence: None)
  Receive Date: 20080929
  Receipt Date: 20080422
  Transmission Date: 20090109
  Serious: No
  Sender: FDA-Public Use
  Company Number: US-BAUSCH-2008BL001779

PATIENT
  Age: 17 Year
  Sex: Male

DRUGS (1)
  1. NEOMYCIN AND POLYMXIN B SULFATES AND HYDROCORTISONE [Suspect]
     Route: 047
     Dates: start: 20080421, end: 20080421

REACTIONS (2)
  - MEDICATION ERROR [None]
  - VISION BLURRED [None]
